FAERS Safety Report 23981557 (Version 1)
Quarter: 2024Q2

REPORT INFORMATION
  Report Type: Spontaneous
  Country: US (occurrence: None)
  Receive Date: 20240614
  Receipt Date: 20240614
  Transmission Date: 20240716
  Serious: Yes (Hospitalization)
  Sender: FDA-Public Use
  Company Number: None

PATIENT
  Age: 77 Year
  Sex: Female

DRUGS (9)
  1. TOBRAMYCIN [Suspect]
     Active Substance: TOBRAMYCIN\TOBRAMYCIN SULFATE
     Indication: Bronchiectasis
     Dosage: 300MG TWICE DAILY 28 DAYS ON NEBULIZER
     Dates: start: 20211022
  2. ARMOUR THYROID [Concomitant]
     Active Substance: THYROID, PORCINE
  3. ELIQUIS [Concomitant]
     Active Substance: APIXABAN
  4. BENZONATATE [Concomitant]
     Active Substance: BENZONATATE
  5. ALBUTEROL [Concomitant]
     Active Substance: ALBUTEROL
  6. FLOVENT [Concomitant]
     Active Substance: FLUTICASONE PROPIONATE
  7. CEFEPIME [Concomitant]
     Active Substance: CEFEPIME HYDROCHLORIDE
  8. DILTIAZEM [Concomitant]
     Active Substance: DILTIAZEM
  9. ciorofloxacin [Concomitant]

REACTIONS (2)
  - Respiratory failure [None]
  - Pneumonia [None]

NARRATIVE: CASE EVENT DATE: 20240609
